FAERS Safety Report 15016803 (Version 1)
Quarter: 2018Q2

REPORT INFORMATION
  Report Type: Spontaneous
  Country: FR (occurrence: FR)
  Receive Date: 20180615
  Receipt Date: 20180615
  Transmission Date: 20180711
  Serious: Yes (Hospitalization)
  Sender: FDA-Public Use
  Company Number: FR-LANNETT COMPANY, INC.-FR-2018LAN000750

PATIENT

DRUGS (2)
  1. BACLOFEN (20MG) [Suspect]
     Active Substance: BACLOFEN
     Dosage: 10 MG, TID
  2. BACLOFEN (20MG) [Suspect]
     Active Substance: BACLOFEN
     Indication: ALCOHOLISM
     Dosage: 90 MG, TID, FOR 2 MONTHS

REACTIONS (3)
  - Drug dependence [Recovering/Resolving]
  - Drug withdrawal syndrome [Recovering/Resolving]
  - Toxicity to various agents [Recovering/Resolving]
